FAERS Safety Report 7169678 (Version 4)
Quarter: 2018Q3

REPORT INFORMATION
  Report Type: Report from Study
  Country: JP (occurrence: JP)
  Receive Date: 20091106
  Receipt Date: 20180919
  Transmission Date: 20181010
  Serious: Yes (Other)
  Sender: FDA-Public Use
  Company Number: PHHY2009JP46498

PATIENT
  Age: 24 Year
  Sex: Female

DRUGS (4)
  1. OMEPRAL [Suspect]
     Active Substance: OMEPRAZOLE
     Indication: PROPHYLAXIS
     Dosage: 20 MG, QD
     Route: 048
     Dates: start: 20090708
  2. TASIGNA [Suspect]
     Active Substance: NILOTINIB
     Indication: CHRONIC MYELOID LEUKAEMIA
     Dosage: 400 MG, QD
     Route: 048
     Dates: start: 20090710, end: 20090804
  3. BAKTAR [Concomitant]
     Active Substance: SULFAMETHOXAZOLE\TRIMETHOPRIM
     Indication: PROPHYLAXIS
     Dosage: 4 DF, UNK
     Route: 048
     Dates: start: 20090803, end: 20090811
  4. NEUTROGIN [Suspect]
     Active Substance: LENOGRASTIM
     Indication: PANCYTOPENIA
     Dosage: 100 G, QD
     Route: 042
     Dates: start: 20090709, end: 20090713

REACTIONS (11)
  - Lymphopenia [Not Recovered/Not Resolved]
  - Monocyte count increased [Recovered/Resolved]
  - Hypoglycaemia [Recovered/Resolved]
  - Hypokalaemia [Recovering/Resolving]
  - White blood cell count increased [Recovered/Resolved]
  - Anaemia [Unknown]
  - Hypomagnesaemia [Recovered/Resolved]
  - Neutrophil count increased [Recovered/Resolved]
  - Thrombocytopenia [Not Recovered/Not Resolved]
  - Basophil count increased [Recovered/Resolved]
  - Electrocardiogram QT prolonged [Not Recovered/Not Resolved]

NARRATIVE: CASE EVENT DATE: 20090713
